FAERS Safety Report 7480302-5 (Version None)
Quarter: 2011Q2

REPORT INFORMATION
  Report Type: 
  Country: None (occurrence: None)
  Receive Date: 20110512
  Receipt Date: 20110512
  Transmission Date: 20111010
  Serious: Yes (Other)
  Sender: FDA-Public Use
  Company Number: None

PATIENT
  Age: 37 Year
  Sex: Female
  Weight: 65.7 kg

DRUGS (1)
  1. FENTANYL CITRATE [Suspect]
     Indication: PAIN
     Dosage: FENTANYL CITRATE 50MG IV BOLUS X 2 DOSES
     Dates: start: 20100617

REACTIONS (3)
  - ERYTHEMA [None]
  - PRURITUS [None]
  - BURNING SENSATION [None]
